FAERS Safety Report 6108609-4 (Version None)
Quarter: 2009Q1

REPORT INFORMATION
  Report Type: 
  Country: None (occurrence: None)
  Receive Date: 20090305
  Receipt Date: 20090223
  Transmission Date: 20090719
  Serious: Yes (Other)
  Sender: FDA-Public Use
  Company Number: GXKR2009GB02291

PATIENT
  Age: 50 Year
  Sex: Male
  Weight: 89 kg

DRUGS (15)
  1. VENLAFAXINE HCL [Suspect]
     Indication: DEPRESSION
     Dosage: 225 MG, ORAL
     Route: 048
     Dates: start: 20080222
  2. ACETYLSALICYLIC ACID SRT [Concomitant]
  3. ATORVASTATIN CALCIUM [Concomitant]
  4. BEZALIP-MONO (BEZAFIBRATE) [Concomitant]
  5. BISOPROLOL (BISOPROLOL) [Concomitant]
  6. CARBAMAZEPINE [Concomitant]
  7. CODEINE PHOSPHATE AND ACETAMINOPHEN [Concomitant]
  8. DIAZEPAM [Concomitant]
  9. DIPYRIDAMOLE [Concomitant]
  10. ISOSORBIDE MONONITRATE [Concomitant]
  11. NOVOMIX (INSULIN ASPART) [Concomitant]
  12. OMEGA-3 ACID ETHYL ESTERS (OMEGA-3 ACID ETHYL ESTERS) [Concomitant]
  13. OMERAZOLE (OMEPRAZOLE) [Concomitant]
  14. PERINDOPRIL ERBUMINE [Concomitant]
  15. QUETIAPINE (QUETIAPINE) [Concomitant]

REACTIONS (2)
  - BLOOD CHOLESTEROL INCREASED [None]
  - HYPERTRIGLYCERIDAEMIA [None]
